FAERS Safety Report 11557977 (Version 1)
Quarter: 2015Q3

REPORT INFORMATION
  Report Type: Spontaneous
  Country: US (occurrence: US)
  Receive Date: 20150928
  Receipt Date: 20150928
  Transmission Date: 20151125
  Serious: No
  Sender: FDA-Public Use
  Company Number: US-AMGEN-USASP2015098399

PATIENT
  Sex: Female

DRUGS (1)
  1. ENBREL [Suspect]
     Active Substance: ETANERCEPT
     Indication: PSORIATIC ARTHROPATHY
     Dosage: UNK
     Route: 065
     Dates: start: 2013

REACTIONS (8)
  - Skin exfoliation [Unknown]
  - Injection site warmth [Unknown]
  - Dry skin [Unknown]
  - Injection site reaction [Unknown]
  - Increased tendency to bruise [Unknown]
  - Musculoskeletal stiffness [Unknown]
  - Arthropathy [Not Recovered/Not Resolved]
  - Injection site swelling [Unknown]

NARRATIVE: CASE EVENT DATE: 201509
